FAERS Safety Report 6104260-0 (Version None)
Quarter: 2009Q1

REPORT INFORMATION
  Report Type: 
  Country: None (occurrence: None)
  Receive Date: 20090305
  Receipt Date: 20090226
  Transmission Date: 20090719
  Serious: Yes (Hospitalization)
  Sender: FDA-Public Use
  Company Number: PHHY2008CH29110

PATIENT
  Age: 80 Year
  Sex: Female

DRUGS (5)
  1. VOLTAREN [Suspect]
     Indication: PAIN
     Dosage: UNK
     Dates: end: 20071220
  2. KCL-RETARD [Suspect]
     Dosage: 1 DOSAGE FORM/DAY
     Dates: end: 20071220
  3. ENATEC [Suspect]
     Dosage: 1 DOSAGE FORM/DAY
     Dates: end: 20071220
  4. ELTROXIN [Concomitant]
  5. METFORMIN [Concomitant]

REACTIONS (2)
  - HYPERKALAEMIA [None]
  - RENAL FAILURE [None]
